FAERS Safety Report 11387715 (Version 1)
Quarter: 2015Q3

REPORT INFORMATION
  Report Type: Spontaneous
  Country: US (occurrence: US)
  Receive Date: 20150817
  Receipt Date: 20150817
  Transmission Date: 20151125
  Serious: Yes (Hospitalization, Other)
  Sender: FDA-Public Use
  Company Number: US-MYLANLABS-2015M1026613

PATIENT

DRUGS (5)
  1. DIPHENHYDRAMINE. [Suspect]
     Active Substance: DIPHENHYDRAMINE
     Dosage: 50 MG, TID
     Dates: end: 19790605
  2. LITHIUM CARBONATE. [Suspect]
     Active Substance: LITHIUM CARBONATE
     Dosage: 900 MG, QD
     Dates: start: 1979
  3. HALOPERIDOL. [Suspect]
     Active Substance: HALOPERIDOL
     Dosage: 15 MG, QD
     Dates: start: 197905
  4. SINEMET [Suspect]
     Active Substance: CARBIDOPA\LEVODOPA
     Dosage: 25,250 MG, TID
     Dates: end: 19790605
  5. AMANTADINE [Suspect]
     Active Substance: AMANTADINE
     Dosage: 100 MG, BID
     Dates: end: 19790605

REACTIONS (1)
  - Neuroleptic malignant syndrome [Recovering/Resolving]
